FAERS Safety Report 4774203-0 (Version None)
Quarter: 2005Q3

REPORT INFORMATION
  Report Type: 
  Country: None (occurrence: None)
  Receive Date: 20050914
  Receipt Date: 20050401
  Transmission Date: 20060218
  Serious: Yes (Other)
  Sender: FDA-Public Use
  Company Number: 163-20785-05040191

PATIENT
  Sex: Female

DRUGS (1)
  1. THALOMID [Suspect]
     Indication: UTERINE LEIOMYOSARCOMA
     Dosage: 200MG, INCREASED BY 200MG INCREMENTS AT 2 WK INTERVALS TO A MAX.DOSE OF 1000MG/DAY, QD, ORAL
     Route: 048
     Dates: start: 20020603

REACTIONS (1)
  - SYNCOPE [None]
